FAERS Safety Report 23930990 (Version 1)
Quarter: 2024Q2

REPORT INFORMATION
  Report Type: Spontaneous
  Country: US (occurrence: None)
  Receive Date: 20240603
  Receipt Date: 20240603
  Transmission Date: 20240715
  Serious: Yes (Other)
  Sender: FDA-Public Use
  Company Number: US-INFO-20240130

PATIENT

DRUGS (1)
  1. NOREPINEPHRINE [Suspect]
     Active Substance: NOREPINEPHRINE\NOREPINEPHRINE BITARTRATE
     Dosage: NOREPINEPHRINE BITARTRATE IN 0.9% NACL INJECTION 4/250 MG/ML ()

REACTIONS (3)
  - Accidental exposure to product [Unknown]
  - Product packaging issue [Unknown]
  - No adverse event [Unknown]
